FAERS Safety Report 19994484 (Version 1)
Quarter: 2021Q4

REPORT INFORMATION
  Report Type: Spontaneous
  Country: US (occurrence: US)
  Receive Date: 20211025
  Receipt Date: 20211025
  Transmission Date: 20220303
  Serious: Yes (Hospitalization)
  Sender: FDA-Public Use
  Company Number: None

PATIENT
  Age: 72 Year
  Sex: Female

DRUGS (11)
  1. ZORTRESS [Suspect]
     Active Substance: EVEROLIMUS
     Indication: Renal transplant
     Route: 048
     Dates: start: 20190906
  2. AMLODIPINE [Concomitant]
     Active Substance: AMLODIPINE BESYLATE
  3. VITAMINS [Concomitant]
     Active Substance: VITAMINS
  4. EVEROLIMUS [Concomitant]
     Active Substance: EVEROLIMUS
  5. INSULIN NOS [Concomitant]
     Active Substance: INSULIN NOS
  6. LEVOTHYROXINE [Concomitant]
     Active Substance: LEVOTHYROXINE
  7. MAGNESIUM OXIDE [Concomitant]
     Active Substance: MAGNESIUM OXIDE
  8. METRONIDAZOLE [Concomitant]
     Active Substance: METRONIDAZOLE
  9. OMEGA-3 FATTY ACIDS [Concomitant]
     Active Substance: OMEGA-3 FATTY ACIDS
  10. PREDNISONE [Concomitant]
     Active Substance: PREDNISONE
  11. PROBIOTICS NOS [Concomitant]
     Active Substance: PROBIOTICS NOS

REACTIONS (2)
  - Staphylococcal infection [None]
  - Therapy change [None]

NARRATIVE: CASE EVENT DATE: 20211008
